FAERS Safety Report 4790963-7 (Version None)
Quarter: 2005Q4

REPORT INFORMATION
  Report Type: 
  Country: None (occurrence: None)
  Receive Date: 20051005
  Receipt Date: 20050919
  Transmission Date: 20060501
  Serious: Yes (Death, Hospitalization)
  Sender: FDA-Public Use
  Company Number: 2005-BP-16492RO

PATIENT
  Age: 68 Year
  Sex: Male
  Weight: 77.1 kg

DRUGS (4)
  1. METHADONE HCL [Suspect]
     Indication: ALCOHOL WITHDRAWAL SYNDROME
     Dosage: PO
     Route: 048
     Dates: end: 20050201
  2. ALPRAZOLAM [Suspect]
     Indication: ANXIETY
     Dosage: PO
     Route: 048
     Dates: end: 20050201
  3. BIVALIRUDIN (BIVALIRUDIN) [Suspect]
     Dosage: SEE TEXT, IV
     Route: 042
     Dates: start: 20040720, end: 20040720
  4. ONDASETRON (ONDASETRON) [Suspect]
     Dosage: PO
     Route: 048
     Dates: end: 20050201

REACTIONS (5)
  - ANOXIC ENCEPHALOPATHY [None]
  - CARDIO-RESPIRATORY ARREST [None]
  - NAUSEA [None]
  - PAIN [None]
  - SYNCOPE [None]
